FAERS Safety Report 22519465 (Version 1)
Quarter: 2023Q2

REPORT INFORMATION
  Report Type: Spontaneous
  Country: US (occurrence: None)
  Receive Date: 20230601
  Receipt Date: 20230601
  Transmission Date: 20230721
  Serious: Yes (Other)
  Sender: FDA-Public Use
  Company Number: None

PATIENT
  Age: 27 Year
  Sex: Male
  Weight: 80.29 kg

DRUGS (1)
  1. SUBOXONE [Suspect]
     Active Substance: BUPRENORPHINE HYDROCHLORIDE\NALOXONE HYDROCHLORIDE
     Indication: Drug dependence
     Dosage: OTHER QUANTITY : 8/2MG;?FREQUENCY : TWICE A DAY;?
     Route: 060
     Dates: start: 202208

REACTIONS (3)
  - Product use complaint [None]
  - Malabsorption [None]
  - Oral administration complication [None]

NARRATIVE: CASE EVENT DATE: 20230501
